FAERS Safety Report 24872014 (Version 1)
Quarter: 2025Q1

REPORT INFORMATION
  Report Type: Spontaneous
  Country: PT (occurrence: PT)
  Receive Date: 20250122
  Receipt Date: 20250122
  Transmission Date: 20250409
  Serious: Yes (Other)
  Sender: AMGEN
  Company Number: PT-AMGEN-PRTSP2025008329

PATIENT
  Age: 71 Year
  Sex: Female

DRUGS (1)
  1. PROLIA [Suspect]
     Active Substance: DENOSUMAB
     Indication: Osteoporosis postmenopausal
     Route: 065
     Dates: start: 2017, end: 2020

REACTIONS (4)
  - Spinal fracture [Recovering/Resolving]
  - Osteoporotic fracture [Recovering/Resolving]
  - Cushing^s syndrome [Unknown]
  - Diabetes mellitus [Unknown]
